FAERS Safety Report 9382534 (Version 1)
Quarter: 2013Q3

REPORT INFORMATION
  Report Type: Spontaneous
  Country: BR (occurrence: BR)
  Receive Date: 20130703
  Receipt Date: 20130703
  Transmission Date: 20140515
  Serious: Yes (Death)
  Sender: FDA-Public Use
  Company Number: BR-GLAXOSMITHKLINE-A1029288A

PATIENT
  Sex: Male
  Weight: 70 kg

DRUGS (3)
  1. SERETIDE [Suspect]
     Indication: PRODUCT USED FOR UNKNOWN INDICATION
  2. UNKNOWN [Concomitant]
  3. CORTICOSTEROIDS [Concomitant]

REACTIONS (2)
  - Cardio-respiratory arrest [Fatal]
  - Pulmonary fibrosis [Fatal]
